FAERS Safety Report 19789148 (Version 1)
Quarter: 2021Q3

REPORT INFORMATION
  Report Type: Spontaneous
  Country: GB (occurrence: GB)
  Receive Date: 20210904
  Receipt Date: 20210904
  Transmission Date: 20211014
  Serious: Yes (Other)
  Sender: FDA-Public Use
  Company Number: GB-ACCORD-207595

PATIENT
  Age: 64 Year
  Sex: Male

DRUGS (2)
  1. CARBOPLATIN. [Suspect]
     Active Substance: CARBOPLATIN
     Indication: ANAPLASTIC THYROID CANCER
     Dosage: STRENGTH:10 MG/ML
  2. PACLITAXEL/PACLITAXEL LIPOSOME [Suspect]
     Active Substance: PACLITAXEL
     Indication: ANAPLASTIC THYROID CANCER
     Dosage: STRENGTH: 6 MG/ML

REACTIONS (2)
  - Disease progression [Unknown]
  - Drug ineffective [Unknown]
